FAERS Safety Report 11967127 (Version 2)
Quarter: 2016Q2

REPORT INFORMATION
  Report Type: Spontaneous
  Country: US (occurrence: US)
  Receive Date: 20160127
  Receipt Date: 20160419
  Transmission Date: 20160815
  Serious: Yes (Other)
  Sender: FDA-Public Use
  Company Number: US-LUNDBECK-DKLU2009180

PATIENT
  Age: 8 Year
  Sex: Female

DRUGS (5)
  1. SABRIL [Suspect]
     Active Substance: VIGABATRIN
     Indication: INFANTILE SPASMS
     Route: 048
     Dates: start: 20151209
  2. ONFI [Concomitant]
     Active Substance: CLOBAZAM
     Route: 065
  3. ONFI [Concomitant]
     Active Substance: CLOBAZAM
     Indication: PRODUCT USED FOR UNKNOWN INDICATION
     Route: 065
  4. TOPIRAMATE. [Concomitant]
     Active Substance: TOPIRAMATE
     Indication: PRODUCT USED FOR UNKNOWN INDICATION
     Route: 065
  5. ONFI [Concomitant]
     Active Substance: CLOBAZAM
     Route: 065

REACTIONS (2)
  - Myoclonus [Unknown]
  - Seizure [Recovered/Resolved]

NARRATIVE: CASE EVENT DATE: 20160121
